FAERS Safety Report 13745659 (Version 1)
Quarter: 2017Q3

REPORT INFORMATION
  Report Type: Spontaneous
  Country: US (occurrence: US)
  Receive Date: 20170712
  Receipt Date: 20170712
  Transmission Date: 20171127
  Serious: Yes (Other)
  Sender: FDA-Public Use
  Company Number: None

PATIENT
  Age: 76 Year
  Sex: Female
  Weight: 68.04 kg

DRUGS (3)
  1. SULFAMETHOXAZOLE 800MG-TRIMETHOPRIM 160 GENERIC FOR BACTRIM DS; SEPTRA DS [Suspect]
     Active Substance: SULFAMETHOXAZOLE\TRIMETHOPRIM
     Indication: INFECTION
     Dosage: ?          QUANTITY:Z PUNS, OF 7 TEASPOON, GI;?
     Route: 048
     Dates: start: 20170629, end: 20170629
  2. DILANTIN [Concomitant]
     Active Substance: PHENYTOIN
  3. SULFAMETHOXAZOLE 800MG-TRIMETHOPRIM 160 GENERIC FOR BACTRIM DS; SEPTRA DS [Suspect]
     Active Substance: SULFAMETHOXAZOLE\TRIMETHOPRIM
     Indication: ANIMAL SCRATCH
     Dosage: ?          QUANTITY:Z PUNS, OF 7 TEASPOON, GI;?
     Route: 048
     Dates: start: 20170629, end: 20170629

REACTIONS (3)
  - Chest pain [None]
  - Choking sensation [None]
  - Drug hypersensitivity [None]

NARRATIVE: CASE EVENT DATE: 20170629
